FAERS Safety Report 13180353 (Version 1)
Quarter: 2017Q1

REPORT INFORMATION
  Report Type: Report from Study
  Country: CA (occurrence: CA)
  Receive Date: 20170202
  Receipt Date: 20170202
  Transmission Date: 20170428
  Serious: Yes (Other)
  Sender: FDA-Public Use
  Company Number: CA-JNJFOC-20170128315

PATIENT
  Age: 51 Year
  Sex: Male
  Weight: 111.5 kg

DRUGS (1)
  1. REMICADE [Suspect]
     Active Substance: INFLIXIMAB
     Indication: CROHN^S DISEASE
     Route: 042

REACTIONS (2)
  - Nephrolithiasis [Recovering/Resolving]
  - Cystitis [Recovered/Resolved]

NARRATIVE: CASE EVENT DATE: 20161219
